FAERS Safety Report 10510368 (Version 1)
Quarter: 2014Q4

REPORT INFORMATION
  Report Type: Spontaneous
  Country: US (occurrence: None)
  Receive Date: 20141009
  Receipt Date: 20141009
  Transmission Date: 20150528
  Serious: Yes (Life-Threatening, Disabling, Other)
  Sender: FDA-Public Use
  Company Number: None

PATIENT
  Age: 53 Year
  Sex: Male
  Weight: 108.86 kg

DRUGS (1)
  1. NAMENDA XR [Suspect]
     Active Substance: MEMANTINE HYDROCHLORIDE
     Indication: DEMENTIA
     Dosage: 1/28 MG/DAILY ONCE DAILY TAKEN BY MOUTH
     Route: 048

REACTIONS (15)
  - Thinking abnormal [None]
  - Drug effect decreased [None]
  - Therapy cessation [None]
  - Therapy change [None]
  - Pain [None]
  - Negative thoughts [None]
  - Activities of daily living impaired [None]
  - Depression [None]
  - Circadian rhythm sleep disorder [None]
  - Headache [None]
  - Withdrawal syndrome [None]
  - Suicidal ideation [None]
  - Amnesia [None]
  - Muscle spasms [None]
  - Weight increased [None]

NARRATIVE: CASE EVENT DATE: 20140901
